FAERS Safety Report 15602291 (Version 2)
Quarter: 2018Q4

REPORT INFORMATION
  Report Type: Spontaneous
  Country: US (occurrence: US)
  Receive Date: 20181109
  Receipt Date: 20181114
  Transmission Date: 20190205
  Serious: Yes (Other)
  Sender: FDA-Public Use
  Company Number: US-COOPERSURGICAL, INC.-US-2018CPS033642

PATIENT

DRUGS (1)
  1. PARAGARD T 380A [Suspect]
     Active Substance: COPPER
     Indication: CONTRACEPTION
     Dosage: UNK
     Route: 015
     Dates: start: 201308

REACTIONS (15)
  - Cardiac valve disease [Not Recovered/Not Resolved]
  - Muscle spasms [Not Recovered/Not Resolved]
  - Menorrhagia [Not Recovered/Not Resolved]
  - Sensation of foreign body [Not Recovered/Not Resolved]
  - Vulvovaginal burning sensation [Not Recovered/Not Resolved]
  - Vaginal discharge [Not Recovered/Not Resolved]
  - Pelvic inflammatory disease [Not Recovered/Not Resolved]
  - Bacterial vaginosis [Not Recovered/Not Resolved]
  - Device dislocation [Not Recovered/Not Resolved]
  - Urinary tract infection [Not Recovered/Not Resolved]
  - Hypoaesthesia [Not Recovered/Not Resolved]
  - Device expulsion [Not Recovered/Not Resolved]
  - Vaginal odour [Not Recovered/Not Resolved]
  - Pain [Not Recovered/Not Resolved]
  - Dysuria [Not Recovered/Not Resolved]

NARRATIVE: CASE EVENT DATE: 2013
